FAERS Safety Report 4885958-9 (Version None)
Quarter: 2006Q1

REPORT INFORMATION
  Report Type: 
  Country: None (occurrence: None)
  Receive Date: 20060117
  Receipt Date: 20060105
  Transmission Date: 20060701
  Serious: Yes (Hospitalization, Other)
  Sender: FDA-Public Use
  Company Number: 2005168568

PATIENT
  Age: 59 Year
  Sex: Male
  Weight: 63 kg

DRUGS (8)
  1. VFEND [Suspect]
     Indication: FUNGAL INFECTION
     Dosage: 400 MG (2 IN 1 D), INTRAVENOUS
     Route: 042
     Dates: start: 20051207, end: 20051209
  2. MYLOTARG [Suspect]
     Indication: ACUTE MYELOID LEUKAEMIA
     Dosage: 16 MG (16 MG, 1 IN 1 D), INTRAVENOUS
     Route: 042
     Dates: start: 20051130, end: 20051130
  3. MICAFUNGIN (MICAFUNGIN) [Concomitant]
  4. TIENAM (CILASTATIN, IMIPENEM) [Concomitant]
  5. MIRIMOSTIM (MIRIMOSTIM) [Concomitant]
  6. STRONG NEO-MINOPHAGEN C (AMINOACETIC ACID, CYSTEINE, GLYCYRRHIZIC ACID [Concomitant]
  7. CARBENIN (BETAMIPRON, PANIPENEM) [Concomitant]
  8. HABEKACIN (ARBEKACIN) [Concomitant]

REACTIONS (7)
  - ALANINE AMINOTRANSFERASE INCREASED [None]
  - ASPARTATE AMINOTRANSFERASE INCREASED [None]
  - BLOOD BILIRUBIN INCREASED [None]
  - DRUG EFFECT DECREASED [None]
  - LIVER DISORDER [None]
  - PULMONARY VENO-OCCLUSIVE DISEASE [None]
  - WEIGHT INCREASED [None]
